FAERS Safety Report 4486960-1 (Version None)
Quarter: 2004Q4

REPORT INFORMATION
  Report Type: 
  Country: None (occurrence: None)
  Receive Date: 20041027
  Receipt Date: 20040707
  Transmission Date: 20050328
  Serious: Yes (Hospitalization)
  Sender: FDA-Public Use
  Company Number: SK-ROCHE-373557

PATIENT
  Age: 49 Year
  Sex: Female
  Weight: 75 kg

DRUGS (3)
  1. PEG-INTERFERON ALFA 2A (RO 25-8310) [Suspect]
     Indication: HEPATITIS C
     Route: 058
     Dates: start: 20040301, end: 20040515
  2. RIBAVIRIN [Suspect]
     Indication: HEPATITIS C
     Route: 048
     Dates: start: 20040301, end: 20040515
  3. UNIDENTIFIED [Concomitant]
     Dosage: DRUG NAME REPORTED AS PROPYCILIN.

REACTIONS (7)
  - ANAEMIA [None]
  - HAEMATURIA [None]
  - HYPERPYREXIA [None]
  - MICROCYTIC ANAEMIA [None]
  - NEUTROPENIA [None]
  - THROMBOCYTOPENIA [None]
  - VASCULITIS [None]
